FAERS Safety Report 16854405 (Version 3)
Quarter: 2020Q4

REPORT INFORMATION
  Report Type: Other
  Country: US (occurrence: US)
  Receive Date: 20190926
  Receipt Date: 20201125
  Transmission Date: 20210113
  Serious: Yes (Hospitalization, Other)
  Sender: FDA-Public Use
  Company Number: US-ROCHE-2413004

PATIENT
  Sex: Male

DRUGS (3)
  1. CELLCEPT [Suspect]
     Active Substance: MYCOPHENOLATE MOFETIL\MYCOPHENOLATE MOFETIL HYDROCHLORIDE
     Indication: LIVER TRANSPLANT
     Dosage: 2 CAPS PO BID
     Route: 048
  2. VALCYTE [Suspect]
     Active Substance: VALGANCICLOVIR HYDROCHLORIDE
     Indication: LIVER TRANSPLANT
     Dosage: 450MG TAB 2 TABS QD
     Route: 048
  3. VALCYTE [Suspect]
     Active Substance: VALGANCICLOVIR HYDROCHLORIDE
     Dosage: 1 TABLET PO BID
     Route: 048

REACTIONS (5)
  - Diarrhoea [Recovered/Resolved]
  - Cytomegalovirus infection [Unknown]
  - Intentional product use issue [Unknown]
  - Viral load increased [Recovering/Resolving]
  - Off label use [Unknown]
